FAERS Safety Report 5395825-2 (Version None)
Quarter: 2007Q3

REPORT INFORMATION
  Report Type: 
  Country: None (occurrence: None)
  Receive Date: 20070718
  Receipt Date: 20060906
  Transmission Date: 20080115
  Serious: Yes (Other)
  Sender: FDA-Public Use
  Company Number: 2006118750

PATIENT
  Sex: Male
  Weight: 79.3795 kg

DRUGS (1)
  1. CELEBREX [Suspect]

REACTIONS (3)
  - ANXIETY [None]
  - CORONARY ARTERY OCCLUSION [None]
  - DEPRESSION [None]
